FAERS Safety Report 9215149 (Version 2)
Quarter: 2013Q2

REPORT INFORMATION
  Report Type: Spontaneous
  Country: US (occurrence: US)
  Receive Date: 20130405
  Receipt Date: 20130514
  Transmission Date: 20140414
  Serious: Yes (Hospitalization)
  Sender: FDA-Public Use
  Company Number: US-ABBOTT-13P-163-1070170-00

PATIENT
  Age: 36 Year
  Sex: Female
  Weight: 89.44 kg

DRUGS (2)
  1. HUMIRA [Suspect]
     Indication: CROHN^S DISEASE
     Dates: start: 20110525
  2. BENADRYL [Suspect]

REACTIONS (2)
  - Migraine [Not Recovered/Not Resolved]
  - Hypoaesthesia [Recovered/Resolved]
